FAERS Safety Report 5229196-9 (Version None)
Quarter: 2007Q1

REPORT INFORMATION
  Report Type: 
  Country: None (occurrence: None)
  Receive Date: 20061201
  Receipt Date: 20060906
  Transmission Date: 20070707
  Serious: No
  Sender: FDA-Public Use
  Company Number: US200609001454

PATIENT
  Age: 71 Year
  Sex: Female

DRUGS (2)
  1. CYMBALTA [Suspect]
     Indication: ANXIETY
     Dosage: 30 MG, EACH EVENING,
     Dates: start: 20060823
  2. XANAX/USA/(ALPRAZOLAM) [Concomitant]

REACTIONS (4)
  - DIARRHOEA [None]
  - EATING DISORDER [None]
  - HYPERHIDROSIS [None]
  - VISION BLURRED [None]
